FAERS Safety Report 21070308 (Version 2)
Quarter: 2024Q3

REPORT INFORMATION
  Report Type: Spontaneous
  Country: FR (occurrence: FR)
  Receive Date: 20220712
  Receipt Date: 20240814
  Transmission Date: 20241016
  Serious: Yes (Hospitalization)
  Sender: ABBVIE
  Company Number: None

PATIENT
  Age: 68 Year
  Sex: Female
  Weight: 56 kg

DRUGS (4)
  1. VENETOCLAX [Suspect]
     Active Substance: VENETOCLAX
     Indication: Acute myelomonocytic leukaemia
     Dosage: J1-J14?100 MG, FILM-COATED TABLET
     Route: 048
     Dates: start: 20220405, end: 20220503
  2. EVUSHELD [Suspect]
     Active Substance: CILGAVIMAB\TIXAGEVIMAB
     Indication: COVID-19
     Dosage: TIME INTERVAL: 1 CYCLICAL: 1 DF/CURE
     Route: 065
     Dates: start: 20220512, end: 20220512
  3. VIDAZA [Suspect]
     Active Substance: AZACITIDINE
     Indication: Acute myelomonocytic leukaemia
     Dosage: J1-J7?VIDAZA 100 MG, POWDER FOR SUSPENSION FOR INJECTION
     Route: 050
     Dates: start: 20220405, end: 20220503
  4. POSACONAZOLE [Suspect]
     Active Substance: POSACONAZOLE
     Indication: Infection
     Route: 065
     Dates: start: 20220303, end: 20220515

REACTIONS (1)
  - Transient ischaemic attack [Recovering/Resolving]

NARRATIVE: CASE EVENT DATE: 20220515
